FAERS Safety Report 11648568 (Version 1)
Quarter: 2015Q4

REPORT INFORMATION
  Report Type: Spontaneous
  Country: US (occurrence: US)
  Receive Date: 20151021
  Receipt Date: 20151021
  Transmission Date: 20160304
  Serious: No
  Sender: FDA-Public Use
  Company Number: US-PURDUE-USA-2015-0122686

PATIENT
  Sex: Male

DRUGS (2)
  1. FISH OIL [Concomitant]
     Active Substance: FISH OIL
     Indication: BLOOD CHOLESTEROL INCREASED
     Dosage: UNK, DAILY
     Route: 048
  2. OXYCONTIN [Suspect]
     Active Substance: OXYCODONE HYDROCHLORIDE
     Indication: PAIN
     Dosage: 80 MG, BID
     Route: 048
     Dates: start: 2000

REACTIONS (3)
  - Pain [Unknown]
  - Drug ineffective [Not Recovered/Not Resolved]
  - Malaise [Unknown]
